FAERS Safety Report 14552350 (Version 4)
Quarter: 2019Q1

REPORT INFORMATION
  Report Type: Spontaneous
  Country: US (occurrence: US)
  Receive Date: 20180220
  Receipt Date: 20190312
  Transmission Date: 20190417
  Serious: Yes (Other)
  Sender: FDA-Public Use
  Company Number: US-AUROBINDO-AUR-APL-2018-005445

PATIENT
  Sex: Female

DRUGS (1)
  1. ALENDRONATE SODIUM TABLETS USP 70MG [Suspect]
     Active Substance: ALENDRONATE SODIUM
     Indication: OSTEOPOROSIS
     Dosage: 70 MILLIGRAM, EVERY WEEK
     Route: 048
     Dates: start: 201801, end: 20180204

REACTIONS (6)
  - Seizure [Not Recovered/Not Resolved]
  - Insomnia [Not Recovered/Not Resolved]
  - Dehydration [Not Recovered/Not Resolved]
  - Pruritus [Not Recovered/Not Resolved]
  - Condition aggravated [Not Recovered/Not Resolved]
  - Rash [Recovering/Resolving]
